FAERS Safety Report 8014109-7 (Version None)
Quarter: 2011Q4

REPORT INFORMATION
  Report Type: 
  Country: None (occurrence: None)
  Receive Date: 20111229
  Receipt Date: 20111219
  Transmission Date: 20120403
  Serious: Yes (Hospitalization, Other)
  Sender: FDA-Public Use
  Company Number: US-BAXTER-2011BH038445

PATIENT
  Sex: Male

DRUGS (4)
  1. EXTRANEAL [Suspect]
     Route: 033
     Dates: start: 20111219
  2. EXTRANEAL [Suspect]
     Indication: PERITONEAL DIALYSIS
     Route: 033
  3. DIANEAL [Suspect]
     Indication: PERITONEAL DIALYSIS
     Route: 033
  4. DIANEAL [Suspect]
     Route: 033
     Dates: start: 20111219

REACTIONS (3)
  - AMNESIA [None]
  - CATARACT [None]
  - RESPIRATORY ARREST [None]
